FAERS Safety Report 5083198-4 (Version None)
Quarter: 2006Q3

REPORT INFORMATION
  Report Type: 
  Country: None (occurrence: None)
  Receive Date: 20060724
  Receipt Date: 20031121
  Transmission Date: 20061208
  Serious: Yes (Hospitalization)
  Sender: FDA-Public Use
  Company Number: DRON00206001382

PATIENT
  Age: 57 Year
  Sex: Male
  Weight: 85 kg

DRUGS (10)
  1. MARINOL [Suspect]
     Indication: MULTIPLE SCLEROSIS
     Dosage: 1 DOSAGE FORM BID ORAL DAILY DOSE: 2.5 TO 20 MG
     Route: 048
     Dates: start: 20010803, end: 20020801
  2. MARINOL [Suspect]
     Indication: MUSCLE SPASTICITY
     Dosage: 1 DOSAGE FORM BID ORAL DAILY DOSE: 2.5 TO 20 MG
     Route: 048
     Dates: start: 20010803, end: 20020801
  3. BACLOFEN [Concomitant]
  4. COPROXAMOL [Concomitant]
  5. FLUOXETINE [Concomitant]
  6. GABAPENTIN [Concomitant]
  7. NAFTIDROFURYL OALATE [Concomitant]
  8. OXYBUTYNIN [Concomitant]
  9. RAMIPRIL [Concomitant]
  10. LEVOTHYROXINE SODIUM [Concomitant]

REACTIONS (3)
  - CHEST PAIN [None]
  - DIZZINESS [None]
  - MULTIPLE SCLEROSIS [None]
